FAERS Safety Report 20236948 (Version 2)
Quarter: 2022Q4

REPORT INFORMATION
  Report Type: Spontaneous
  Country: US (occurrence: US)
  Receive Date: 20211228
  Receipt Date: 20221227
  Transmission Date: 20230112
  Serious: Yes (Life-Threatening, Hospitalization, Other)
  Sender: FDA-Public Use
  Company Number: US-BRISTOL-MYERS SQUIBB COMPANY-BMS-2021-029910

PATIENT
  Age: 68 Year
  Sex: Female

DRUGS (3)
  1. CLOPIDOGREL [Suspect]
     Active Substance: CLOPIDOGREL BISULFATE
     Indication: Anticoagulant therapy
     Dosage: UNKNOWN
     Route: 065
  2. HEPARIN [Suspect]
     Active Substance: HEPARIN SODIUM
     Indication: Anticoagulant therapy
     Dosage: UNKNOWN
     Route: 065
  3. APIXABAN [Suspect]
     Active Substance: APIXABAN
     Indication: Anticoagulant therapy
     Dosage: UNKNOWN
     Route: 065

REACTIONS (3)
  - Ocular retrobulbar haemorrhage [Unknown]
  - Blindness [Not Recovered/Not Resolved]
  - Orbital compartment syndrome [Unknown]
